FAERS Safety Report 4342589-7 (Version None)
Quarter: 2004Q2

REPORT INFORMATION
  Report Type: 
  Country: None (occurrence: None)
  Receive Date: 20040413
  Receipt Date: 20040405
  Transmission Date: 20050107
  Serious: Yes (Hospitalization)
  Sender: FDA-Public Use
  Company Number: 2003182242DE

PATIENT
  Age: 11 Year
  Sex: Female

DRUGS (2)
  1. TRELSTAR DEPOT [Suspect]
     Indication: PRECOCIOUS PUBERTY
     Dosage: 3.75 MG/28 DAYS, SUBCUTANEOUS
     Route: 058
     Dates: start: 20020901, end: 20030501
  2. LEVOTHYROXINE SODIUM [Concomitant]

REACTIONS (4)
  - ABSCESS [None]
  - INJECTION SITE ERYTHEMA [None]
  - INJECTION SITE SWELLING [None]
  - SCAR [None]
